FAERS Safety Report 4795333-3 (Version None)
Quarter: 2005Q4

REPORT INFORMATION
  Report Type: 
  Country: None (occurrence: None)
  Receive Date: 20051012
  Receipt Date: 20051010
  Transmission Date: 20060501
  Serious: Yes (Death, Hospitalization)
  Sender: FDA-Public Use
  Company Number: ES-GLAXOSMITHKLINE-B0396900A

PATIENT
  Age: 35 Year
  Sex: Male

DRUGS (6)
  1. AUGMENTIN '125' [Suspect]
     Indication: RESPIRATORY DISORDER
     Dosage: 3G PER DAY
     Route: 042
     Dates: start: 20050702, end: 20050708
  2. BAYCIP [Suspect]
     Indication: URETHRAL DISORDER
     Dosage: 1G PER DAY
     Route: 048
     Dates: start: 20050707, end: 20050717
  3. AREMIS [Suspect]
     Dosage: 50MG PER DAY
     Route: 048
     Dates: start: 20050101
  4. SINOGAN [Suspect]
     Dosage: 50MG PER DAY
     Route: 048
     Dates: start: 20050101
  5. CLONAZEPAM [Suspect]
     Dosage: 2MG PER DAY
     Route: 048
     Dates: start: 20050101
  6. RISPERDAL [Suspect]
     Dosage: 3MG PER DAY
     Route: 048
     Dates: start: 20050101

REACTIONS (3)
  - AGRANULOCYTOSIS [None]
  - DYSPHAGIA [None]
  - PNEUMONIA [None]
